FAERS Safety Report 10232953 (Version 1)
Quarter: 2014Q2

REPORT INFORMATION
  Report Type: Spontaneous
  Country: US (occurrence: US)
  Receive Date: 20140612
  Receipt Date: 20140612
  Transmission Date: 20141212
  Serious: Yes (Other)
  Sender: FDA-Public Use
  Company Number: US-PURDUE-USA-2014-0114767

PATIENT
  Sex: Male

DRUGS (1)
  1. DILAUDID ORAL LIQUID [Suspect]
     Indication: PRODUCT USED FOR UNKNOWN INDICATION
     Dosage: 5 TO 10 MG
     Route: 048

REACTIONS (2)
  - Surgery [Unknown]
  - Pain [Unknown]
